FAERS Safety Report 7470402-8 (Version None)
Quarter: 2011Q2

REPORT INFORMATION
  Report Type: 
  Country: None (occurrence: None)
  Receive Date: 20110510
  Receipt Date: 20110427
  Transmission Date: 20111010
  Serious: Yes (Other)
  Sender: FDA-Public Use
  Company Number: JP-JNJFOC-20090705549

PATIENT
  Age: 59 Year
  Sex: Male

DRUGS (1)
  1. DORIPENEM MONOHYDRATE [Suspect]
     Indication: EPIGLOTTITIS
     Route: 041

REACTIONS (2)
  - DRUG ERUPTION [None]
  - ACUTE GENERALISED EXANTHEMATOUS PUSTULOSIS [None]
